FAERS Safety Report 15720747 (Version 3)
Quarter: 2019Q2

REPORT INFORMATION
  Report Type: Spontaneous
  Country: GB (occurrence: GB)
  Receive Date: 20181213
  Receipt Date: 20190518
  Transmission Date: 20190711
  Serious: Yes (Other)
  Sender: FDA-Public Use
  Company Number: GB-JNJFOC-20181211272

PATIENT
  Age: 4 Year
  Sex: Male
  Weight: 19.7 kg

DRUGS (4)
  1. PARACETAMOL [Suspect]
     Active Substance: ACETAMINOPHEN
     Indication: PYREXIA
     Route: 048
  2. PARACETAMOL [Suspect]
     Active Substance: ACETAMINOPHEN
     Indication: PYREXIA
     Route: 048
     Dates: start: 20181120, end: 20181120
  3. PARACETAMOL [Suspect]
     Active Substance: ACETAMINOPHEN
     Indication: ALLERGY TEST
     Route: 048
  4. PARACETAMOL [Suspect]
     Active Substance: ACETAMINOPHEN
     Indication: ALLERGY TEST
     Route: 048
     Dates: start: 20181120, end: 20181120

REACTIONS (6)
  - Peripheral swelling [Unknown]
  - Urticaria [Recovered/Resolved]
  - Allergic reaction to excipient [Recovered/Resolved]
  - Swelling face [Unknown]
  - Vomiting [Unknown]
  - Hypersensitivity [Recovered/Resolved]
